FAERS Safety Report 7044073-9 (Version None)
Quarter: 2010Q4

REPORT INFORMATION
  Report Type: 
  Country: None (occurrence: None)
  Receive Date: 20101013
  Receipt Date: 20101001
  Transmission Date: 20110411
  Serious: Yes (Other)
  Sender: FDA-Public Use
  Company Number: US-PFIZER INC-2010125641

PATIENT
  Sex: Female
  Weight: 77.098 kg

DRUGS (20)
  1. TOVIAZ [Suspect]
     Indication: HYPERTONIC BLADDER
     Dosage: 4 MG, DAILY
     Route: 048
     Dates: start: 20100924
  2. TOVIAZ [Suspect]
     Indication: AUTOMATIC BLADDER
  3. MIRAPEX [Concomitant]
     Dosage: UNK
  4. NEURONTIN [Concomitant]
     Dosage: UNK
  5. HYDROCHLOROTHIAZIDE [Concomitant]
     Dosage: UNK
  6. NYSTATIN [Concomitant]
     Dosage: UNK
  7. AVAPRO [Concomitant]
     Dosage: UNK
  8. QUINAPRIL [Concomitant]
     Dosage: UNK
  9. SYNTHROID [Concomitant]
     Dosage: UNK
  10. PRILOSEC [Concomitant]
     Dosage: UNK
  11. BUSPAR [Concomitant]
     Dosage: UNK
  12. COREG [Concomitant]
     Dosage: UNK
  13. WELCHOL [Concomitant]
     Dosage: UNK
  14. ASPIRIN [Concomitant]
     Dosage: UNK
  15. CO-Q-10 [Concomitant]
     Dosage: UNK
  16. MULTI-VITAMINS [Concomitant]
     Dosage: UNK
  17. GLUCOSAMINE [Concomitant]
     Dosage: UNK
  18. FISH OIL [Concomitant]
     Dosage: UNK
  19. METAMUCIL-2 [Concomitant]
     Dosage: UNK
  20. FLAXSEED OIL [Concomitant]
     Dosage: UNK

REACTIONS (2)
  - BLADDER PAIN [None]
  - URINARY RETENTION [None]
